FAERS Safety Report 8216406-9 (Version None)
Quarter: 2012Q1

REPORT INFORMATION
  Report Type: 
  Country: None (occurrence: None)
  Receive Date: 20120316
  Receipt Date: 20120306
  Transmission Date: 20120608
  Serious: Yes (Death)
  Sender: FDA-Public Use
  Company Number: US-VERTEX PHARMACEUTICALS INC.-AE-2012-003300

PATIENT
  Sex: Male
  Weight: 85.352 kg

DRUGS (1)
  1. INCIVEK [Suspect]
     Indication: HEPATITIS C
     Route: 048

REACTIONS (6)
  - ARTHRALGIA [None]
  - MYALGIA [None]
  - AGITATION [None]
  - CARDIO-RESPIRATORY ARREST [None]
  - SCIATICA [None]
  - ANAEMIA [None]
